FAERS Safety Report 10133815 (Version 1)
Quarter: 2014Q2

REPORT INFORMATION
  Report Type: Spontaneous
  Country: GB (occurrence: GB)
  Receive Date: 20140428
  Receipt Date: 20140428
  Transmission Date: 20141212
  Serious: Yes (Hospitalization, Other)
  Sender: FDA-Public Use
  Company Number: GB-WATSON-2014-08212

PATIENT
  Age: 67 Year
  Sex: Male

DRUGS (16)
  1. EPLERENONE [Suspect]
     Indication: LEFT VENTRICULAR DYSFUNCTION
     Dosage: 25 MG, DAILY
     Route: 048
  2. FUROSEMIDE [Suspect]
     Indication: LEFT VENTRICULAR DYSFUNCTION
     Dosage: 120 MG, 40MG 2 MORNING AND ONE AT LUNCHTIME
     Route: 048
  3. RAMIPRIL [Suspect]
     Indication: LEFT VENTRICULAR DYSFUNCTION
     Dosage: 5 MG, BID
     Route: 048
  4. ORAMORPH [Suspect]
     Indication: BACK PAIN
     Dosage: 10 MG, QID; 10MG PRN QDS BUT POSSIBLE INCREASE IN DOSES PRIOR TO ADMISSION TO HOSPITAL
     Route: 048
  5. ZOMORPH [Suspect]
     Indication: BACK PAIN
     Dosage: 30 MG, QAM/QPM; 20MG MROM AND 10MGMR AT NIGHT BUT POSSIBLE INCREASED DOSE DUE TO INCREASED PAIN
     Route: 048
  6. ATORVASTATIN [Concomitant]
     Indication: PRODUCT USED FOR UNKNOWN INDICATION
     Dosage: 40 MG, QHS
     Route: 065
  7. METFORMIN [Concomitant]
     Indication: PRODUCT USED FOR UNKNOWN INDICATION
     Dosage: 1 G, QAM/QPM (1G IN THE MORNING AND EVENING); MODIFIED RELEASE
     Route: 065
  8. NOVOMIX [Concomitant]
     Indication: PRODUCT USED FOR UNKNOWN INDICATION
     Dosage: 10 IU, DAILY; 10 UNITS AT TEATIME
     Route: 065
  9. WARFARIN [Concomitant]
     Indication: PRODUCT USED FOR UNKNOWN INDICATION
     Dosage: UNK
     Route: 065
  10. ALLOPURINOL [Concomitant]
     Indication: PRODUCT USED FOR UNKNOWN INDICATION
     Dosage: 100 MG, QHS
     Route: 065
  11. AMITRIPTYLINE [Concomitant]
     Indication: PRODUCT USED FOR UNKNOWN INDICATION
     Dosage: 50 MG, QHS
     Route: 065
  12. BISOPROLOL [Concomitant]
     Indication: PRODUCT USED FOR UNKNOWN INDICATION
     Dosage: 5 MG, BID
     Route: 065
  13. DIGOXIN [Concomitant]
     Indication: PRODUCT USED FOR UNKNOWN INDICATION
     Dosage: 125 ?G, DAILY
     Route: 065
  14. RANITIDINE [Concomitant]
     Indication: PRODUCT USED FOR UNKNOWN INDICATION
     Dosage: 150 MG, BID
     Route: 065
  15. SAXAGLIPTIN [Concomitant]
     Indication: PRODUCT USED FOR UNKNOWN INDICATION
     Dosage: 5 MG, BID
     Route: 065
  16. VICTOZA [Concomitant]
     Indication: PRODUCT USED FOR UNKNOWN INDICATION
     Dosage: 1.2 MG, DAILY; AT LUNCHTIME
     Route: 065

REACTIONS (5)
  - Renal failure acute [Recovered/Resolved]
  - Escherichia sepsis [Recovered/Resolved]
  - Toxicity to various agents [Recovered/Resolved]
  - Lethargy [Recovered/Resolved]
  - Vomiting [Recovered/Resolved]
